FAERS Safety Report 5662850-3 (Version None)
Quarter: 2008Q1

REPORT INFORMATION
  Report Type: 
  Country: None (occurrence: None)
  Receive Date: 20080313
  Receipt Date: 20080227
  Transmission Date: 20080703
  Serious: Yes (Other)
  Sender: FDA-Public Use
  Company Number: PHBS2007NZ20379

PATIENT
  Age: 36 Year
  Sex: Male

DRUGS (2)
  1. CLOZARIL [Suspect]
     Indication: SCHIZOPHRENIA
     Dosage: 250 MG, TID
     Dates: start: 20020313
  2. ANTIBIOTICS [Concomitant]

REACTIONS (3)
  - DIZZINESS [None]
  - MITRAL VALVE DISEASE [None]
  - MITRAL VALVE INCOMPETENCE [None]
